FAERS Safety Report 9606481 (Version 1)
Quarter: 2013Q4

REPORT INFORMATION
  Report Type: Spontaneous
  Country: US (occurrence: US)
  Receive Date: 20131008
  Receipt Date: 20131008
  Transmission Date: 20140711
  Serious: No
  Sender: FDA-Public Use
  Company Number: US-AMGEN-USASP2013055902

PATIENT
  Age: 77 Year
  Sex: Female

DRUGS (6)
  1. PROLIA [Suspect]
     Indication: OSTEOPOROSIS POSTMENOPAUSAL
     Dosage: 60 MG, Q6MO
     Route: 065
     Dates: start: 2010
  2. OMEPRAZOLE [Concomitant]
     Dosage: 20 MG, QD
  3. HYDROCHLOROTHIAZIDE [Concomitant]
     Dosage: 75-50 MG, QD
  4. SYNTHROID [Concomitant]
     Dosage: 200 MUG, QD
  5. ATENOLOL [Concomitant]
     Dosage: 25 MG, QD
  6. CALCIUM [Concomitant]

REACTIONS (4)
  - Dry skin [Unknown]
  - Ear infection fungal [Unknown]
  - Pruritus [Recovered/Resolved]
  - Asthenia [Recovered/Resolved]
